FAERS Safety Report 7714769-1 (Version None)
Quarter: 2011Q3

REPORT INFORMATION
  Report Type: 
  Country: None (occurrence: None)
  Receive Date: 20110829
  Receipt Date: 20110818
  Transmission Date: 20111222
  Serious: Yes (Other)
  Sender: FDA-Public Use
  Company Number: AU-JNJFOC-20110808217

PATIENT
  Sex: Female
  Weight: 87.7 kg

DRUGS (1)
  1. INVEGA SUSTENNA [Suspect]
     Indication: SCHIZOPHRENIA
     Dosage: FROM MAY TO AUG
     Route: 030

REACTIONS (5)
  - VISUAL IMPAIRMENT [None]
  - OCULAR HYPERAEMIA [None]
  - THROAT IRRITATION [None]
  - PRURITUS GENERALISED [None]
  - ERYTHEMA [None]
